FAERS Safety Report 25457646 (Version 1)
Quarter: 2025Q2

REPORT INFORMATION
  Report Type: Spontaneous
  Country: JP (occurrence: JP)
  Receive Date: 20250619
  Receipt Date: 20250619
  Transmission Date: 20250716
  Serious: Yes (Other)
  Sender: MERCK SHARP & DOHME LLC
  Company Number: JP-009507513-2297575

PATIENT
  Age: 87 Year
  Sex: Female

DRUGS (1)
  1. PEMBROLIZUMAB [Suspect]
     Active Substance: PEMBROLIZUMAB
     Indication: Gingival cancer

REACTIONS (4)
  - Skin disorder [Unknown]
  - Pemphigoid [Unknown]
  - Therapy partial responder [Unknown]
  - Pruritus [Unknown]
